FAERS Safety Report 9041800 (Version 1)
Quarter: 2013Q1

REPORT INFORMATION
  Report Type: Report from Study
  Country: US (occurrence: US)
  Receive Date: 20130129
  Receipt Date: 20130129
  Transmission Date: 20140127
  Serious: No
  Sender: FDA-Public Use
  Company Number: US-ABBOTT-12P-163-0891421-00

PATIENT
  Age: 54 None
  Sex: Female

DRUGS (13)
  1. HUMIRA 40 MG/0.8 ML PEN [Suspect]
     Indication: RHEUMATOID ARTHRITIS
     Route: 058
     Dates: start: 201110, end: 20111228
  2. HUMIRA 40 MG/0.8 ML PEN [Suspect]
     Dosage: SWITCHED TO SYRINGE
     Dates: start: 20120120
  3. FENTANYL PATCH [Concomitant]
     Indication: BACK PAIN
     Route: 062
     Dates: start: 2011, end: 201201
  4. FENTANYL PATCH [Concomitant]
     Indication: NECK PAIN
  5. VICODIN [Concomitant]
     Indication: BACK PAIN
     Route: 048
  6. VICODIN [Concomitant]
     Indication: NECK PAIN
     Dates: start: 2011
  7. VICODIN [Concomitant]
     Indication: ARTHRALGIA
  8. WELLBUTRIN [Concomitant]
     Indication: DEPRESSION
     Route: 048
  9. WELLBUTRIN [Concomitant]
     Indication: ANXIETY
  10. ZOLOFT [Concomitant]
     Indication: DEPRESSION
     Route: 048
  11. IRON [Concomitant]
     Indication: ROUTINE HEALTH MAINTENANCE
     Dosage: SUPPLEMENT DAILY
  12. MULTIVITAMIN [Concomitant]
     Indication: ROUTINE HEALTH MAINTENANCE
     Dosage: DAILY
     Route: 048
  13. BONIVA [Concomitant]
     Indication: OSTEOPOROSIS
     Route: 050

REACTIONS (14)
  - Injection site erythema [Recovered/Resolved]
  - Injection site pruritus [Recovered/Resolved]
  - Injection site erythema [Recovering/Resolving]
  - Injection site pruritus [Recovered/Resolved]
  - Nasopharyngitis [Unknown]
  - Headache [Unknown]
  - Nasal congestion [Unknown]
  - Cough [Unknown]
  - Rheumatoid arthritis [Unknown]
  - Rash [Recovered/Resolved]
  - Injection site irritation [Recovered/Resolved]
  - Injection site reaction [Not Recovered/Not Resolved]
  - Injection site rash [Not Recovered/Not Resolved]
  - Injection site mass [Not Recovered/Not Resolved]
